FAERS Safety Report 5093590-X (Version None)
Quarter: 2006Q3

REPORT INFORMATION
  Report Type: 
  Country: None (occurrence: None)
  Receive Date: 20060829
  Receipt Date: 20060824
  Transmission Date: 20061208
  Serious: Yes (Other)
  Sender: FDA-Public Use
  Company Number: 147230USA

PATIENT
  Age: 32 Year
  Sex: Female

DRUGS (1)
  1. COPAXONE [Suspect]
     Indication: MULTIPLE SCLEROSIS
     Dosage: 20 MILLIGRAM QD SUBCUTANEOUS
     Route: 058
     Dates: start: 20040501, end: 20051101

REACTIONS (2)
  - NEUROGENIC BLADDER [None]
  - RENAL CELL CARCINOMA STAGE I [None]
